FAERS Safety Report 22807429 (Version 6)
Quarter: 2024Q4

REPORT INFORMATION
  Report Type: Report from Study
  Country: CA (occurrence: CA)
  Receive Date: 20230810
  Receipt Date: 20241009
  Transmission Date: 20250115
  Serious: Yes (Other)
  Sender: JOHNSON AND JOHNSON
  Company Number: CA-JNJFOC-20230731615

PATIENT
  Age: 13 Year
  Sex: Male
  Weight: 39 kg

DRUGS (4)
  1. REMICADE [Suspect]
     Active Substance: INFLIXIMAB
     Indication: Colitis ulcerative
     Dosage: PATIENT RECEIVED 10 MG/KG DOSE AT 0,1,4 THEN FOR EVERY 4 WEEK FREQUENCY, BSA DOSING 1.2X 400 = 512 A
     Route: 041
     Dates: start: 20230711
  2. REMICADE [Suspect]
     Active Substance: INFLIXIMAB
     Dosage: RELOAD AT 0.2 AND 6 WEEKS
     Route: 041
     Dates: start: 2023
  3. REMICADE [Suspect]
     Active Substance: INFLIXIMAB
     Route: 041
  4. PREDNISONE [Concomitant]
     Active Substance: PREDNISONE
     Indication: Product used for unknown indication
     Route: 065

REACTIONS (4)
  - Colitis ulcerative [Unknown]
  - Weight increased [Unknown]
  - Drug level decreased [Unknown]
  - Off label use [Unknown]

NARRATIVE: CASE EVENT DATE: 20230101
